FAERS Safety Report 16568462 (Version 3)
Quarter: 2019Q3

REPORT INFORMATION
  Report Type: Spontaneous
  Country: JP (occurrence: JP)
  Receive Date: 20190712
  Receipt Date: 20190823
  Transmission Date: 20191004
  Serious: Yes (Other)
  Sender: FDA-Public Use
  Company Number: JP-GILEAD-2019-0417752

PATIENT
  Age: 76 Year
  Sex: Male

DRUGS (3)
  1. HARVONI [Suspect]
     Active Substance: LEDIPASVIR\SOFOSBUVIR
     Indication: HEPATIC CIRRHOSIS
     Dosage: UNK
     Route: 065
  2. HARVONI [Suspect]
     Active Substance: LEDIPASVIR\SOFOSBUVIR
     Indication: CHRONIC HEPATITIS C
  3. LACTITOL [Concomitant]
     Active Substance: LACTITOL
     Indication: AMMONIA INCREASED

REACTIONS (3)
  - Renal impairment [Unknown]
  - Gastric varices [Unknown]
  - Hepatic encephalopathy [Recovered/Resolved]
